FAERS Safety Report 5579006-5 (Version None)
Quarter: 2008Q1

REPORT INFORMATION
  Report Type: 
  Country: None (occurrence: None)
  Receive Date: 20080102
  Receipt Date: 20071228
  Transmission Date: 20080703
  Serious: Yes (Other)
  Sender: FDA-Public Use
  Company Number: US-AVENTIS-200718896US

PATIENT
  Age: 49 Year

DRUGS (1)
  1. LOVENOX [Suspect]
     Dosage: DOSE: UNK
     Dates: start: 20071201

REACTIONS (3)
  - COLD SWEAT [None]
  - DYSPNOEA [None]
  - PANIC ATTACK [None]
